FAERS Safety Report 8591915-1 (Version None)
Quarter: 2012Q3

REPORT INFORMATION
  Report Type: 
  Country: None (occurrence: None)
  Receive Date: 20120814
  Receipt Date: 20120806
  Transmission Date: 20120928
  Serious: Yes (Death)
  Sender: FDA-Public Use
  Company Number: FR-GENZYME-CERZ-1002539

PATIENT
  Sex: Male

DRUGS (2)
  1. CEREZYME [Suspect]
     Indication: GAUCHER'S DISEASE
     Dosage: 9 VIALS Q2W
     Route: 042
     Dates: start: 19961201
  2. AMITRIPTYLINE HYDROCHLORIDE [Concomitant]
     Indication: PRODUCT USED FOR UNKNOWN INDICATION
     Dosage: 1 TABLET QD
     Route: 065

REACTIONS (3)
  - DYSKINESIA [None]
  - HEADACHE [None]
  - SUDDEN DEATH [None]
